FAERS Safety Report 19869765 (Version 1)
Quarter: 2021Q3

REPORT INFORMATION
  Report Type: Spontaneous
  Country: JP (occurrence: JP)
  Receive Date: 20210923
  Receipt Date: 20210923
  Transmission Date: 20211014
  Serious: Yes (Other)
  Sender: FDA-Public Use
  Company Number: JP-AMGEN-JPNSP2021143805

PATIENT
  Sex: Female

DRUGS (1)
  1. BLINCYTO [Suspect]
     Active Substance: BLINATUMOMAB
     Indication: B PRECURSOR TYPE ACUTE LEUKAEMIA
     Dosage: 9 MICROGRAM, QD
     Route: 041
     Dates: start: 20210914

REACTIONS (7)
  - Tumour lysis syndrome [Unknown]
  - Coagulopathy [Unknown]
  - Cytokine release syndrome [Unknown]
  - Blood lactate dehydrogenase increased [Unknown]
  - Myelosuppression [Unknown]
  - Liver disorder [Unknown]
  - Pyrexia [Unknown]
